FAERS Safety Report 6185491-0 (Version None)
Quarter: 2009Q2

REPORT INFORMATION
  Report Type: 
  Country: None (occurrence: None)
  Receive Date: 20090511
  Receipt Date: 20090507
  Transmission Date: 20091009
  Serious: Yes (Death, Other)
  Sender: FDA-Public Use
  Company Number: PHHY2009RU17293

PATIENT
  Age: 76 Year
  Sex: Female

DRUGS (5)
  1. ACLASTA [Suspect]
     Indication: OSTEOPOROSIS
     Dosage: UNK
     Route: 042
     Dates: start: 20090126
  2. ATACAND [Concomitant]
  3. NORVASC [Concomitant]
  4. ASPIRIN [Concomitant]
  5. SOTALEX [Concomitant]

REACTIONS (10)
  - ANAEMIA [None]
  - ASTHENIA [None]
  - CIRCULATORY COLLAPSE [None]
  - EPIGLOTTITIS [None]
  - GENERAL PHYSICAL HEALTH DETERIORATION [None]
  - HYPERTHYROIDISM [None]
  - HYPOCALCAEMIA [None]
  - LEUKOPENIA [None]
  - PYREXIA [None]
  - THYROID ADENOMA [None]
